FAERS Safety Report 7356189-8 (Version None)
Quarter: 2011Q1

REPORT INFORMATION
  Report Type: 
  Country: None (occurrence: None)
  Receive Date: 20110316
  Receipt Date: 20110310
  Transmission Date: 20110831
  Serious: Yes (Other)
  Sender: FDA-Public Use
  Company Number: US-PFIZER INC-2011053792

PATIENT
  Sex: Female
  Weight: 83.9 kg

DRUGS (4)
  1. PREPARATION H [Suspect]
     Indication: SKIN IRRITATION
     Dosage: UNK
     Dates: start: 20110309
  2. PERCOCET [Concomitant]
     Dosage: UNK
  3. MILNACIPRAN [Concomitant]
     Dosage: UNK
  4. MAXALT [Concomitant]
     Dosage: UNK

REACTIONS (1)
  - THERMAL BURN [None]
